FAERS Safety Report 18406913 (Version 2)
Quarter: 2021Q1

REPORT INFORMATION
  Report Type: Report from Study
  Country: NL (occurrence: NL)
  Receive Date: 20201020
  Receipt Date: 20210321
  Transmission Date: 20210419
  Serious: Yes (Death, Other)
  Sender: FDA-Public Use
  Company Number: NVSC2020NL278386

PATIENT
  Sex: Male
  Weight: 110 kg

DRUGS (11)
  1. SANDOSTATINE LAR [Suspect]
     Active Substance: OCTREOTIDE ACETATE
     Indication: DUMPING SYNDROME
     Dosage: 1 DF, Q4W (1.00 X PER 4 WEEKS)
     Route: 030
  2. PREDNISOLONE. [Concomitant]
     Active Substance: PREDNISOLONE
     Indication: PRODUCT USED FOR UNKNOWN INDICATION
     Dosage: 5 MG, (1X PER DAY 1 PIECE IN THE MORNING)
     Route: 048
  3. OMEPRAZOLE. [Concomitant]
     Active Substance: OMEPRAZOLE
     Indication: PRODUCT USED FOR UNKNOWN INDICATION
     Dosage: 20 MG, (GASTRO RESISTANT TABLET, 1X PER DAY 1 PIECE)
     Route: 048
  4. SANDOSTATINE LAR [Suspect]
     Active Substance: OCTREOTIDE ACETATE
     Dosage: 10 MG, QMO, (EVERY 4 WEEKS)
     Route: 065
     Dates: start: 2007, end: 201804
  5. SANDOSTATINE LAR [Suspect]
     Active Substance: OCTREOTIDE ACETATE
     Dosage: 30 MG, (ONCE A WEEK)
     Route: 065
     Dates: start: 2018
  6. OXYCODONE [Concomitant]
     Active Substance: OXYCODONE
     Indication: PRODUCT USED FOR UNKNOWN INDICATION
     Dosage: 10 MG, (2X PER DAY 1 PIECE 2 TO 4 TIMES 1)
     Route: 048
  7. ACENOCOUMAROL [Concomitant]
     Active Substance: ACENOCOUMAROL
     Indication: PRODUCT USED FOR UNKNOWN INDICATION
     Dosage: 1 MG, (1X PER DAY DOSING BY THROMBOSIS SERVICE
     Route: 048
  8. QUETIAPINE. [Concomitant]
     Active Substance: QUETIAPINE
     Indication: PRODUCT USED FOR UNKNOWN INDICATION
     Dosage: 50 MG, (REGULATED RELEASE TABLET (LONG DURATION), 2X PER DAY 1 PIECE)
     Route: 048
  9. PAROXETIN [Concomitant]
     Active Substance: PAROXETINE HYDROCHLORIDE
     Indication: PRODUCT USED FOR UNKNOWN INDICATION
     Dosage: 20 MG, (1X PER DAY 3 PIECE)
     Route: 048
  10. HYDROXOCOBALAMIN [Concomitant]
     Active Substance: HYDROXOCOBALAMIN
     Indication: PRODUCT USED FOR UNKNOWN INDICATION
     Dosage: UNK, (500 UG/ML AMP 2 ML (GIVEN TO THE GP))
     Route: 051
  11. OXYGEN. [Concomitant]
     Active Substance: OXYGEN
     Indication: PRODUCT USED FOR UNKNOWN INDICATION
     Dosage: UNK, (4 HOURS PER DAY 2 LITRE)
     Route: 065

REACTIONS (16)
  - Fournier^s gangrene [Unknown]
  - Product use in unapproved indication [Unknown]
  - Gastric ulcer [Unknown]
  - Interstitial lung disease [Unknown]
  - Sleep apnoea syndrome [Unknown]
  - Blood glucose increased [Unknown]
  - Terminal state [Fatal]
  - Organising pneumonia [Unknown]
  - Skin necrosis [Unknown]
  - Malabsorption [Unknown]
  - Respiratory failure [Fatal]
  - Perineal fistula [Unknown]
  - Stomal hernia [Unknown]
  - Clostridium colitis [Unknown]
  - Constipation [Unknown]
  - Inappropriate schedule of product administration [Unknown]

NARRATIVE: CASE EVENT DATE: 2009
